FAERS Safety Report 8750097 (Version 2)
Quarter: 2012Q4

REPORT INFORMATION
  Report Type: Spontaneous
  Country: US (occurrence: None)
  Receive Date: 20120810
  Receipt Date: 20120824
  Transmission Date: 20130627
  Serious: Yes (Other)
  Sender: FDA-Public Use
  Company Number: TPA2012A03935

PATIENT
  Age: 51 Year
  Sex: Female
  Weight: 99.79 kg

DRUGS (8)
  1. ACTOS [Suspect]
     Indication: TYPE 2 DIABETES MELLITUS
     Route: 048
     Dates: start: 20101027, end: 20110120
  2. ACTOS [Suspect]
     Indication: TYPE 2 DIABETES MELLITUS
     Dates: start: 20100416, end: 20101026
  3. ACTOS [Suspect]
     Indication: TYPE 2 DIABETES MELLITUS
     Dates: start: 20080501, end: 20100221
  4. ACTOS [Suspect]
     Indication: TYPE 2 DIABETES MELLITUS
     Dates: start: 20060314, end: 20080430
  5. ACTOS [Suspect]
     Indication: TYPE 2 DIABETES MELLITUS
     Dates: start: 20060103, end: 20060313
  6. METFORMIN HYDROCHLORIDE [Concomitant]
  7. GLARGINE/LANTUS (INSULIN GLARGINE) [Concomitant]
  8. BYETTA [Concomitant]

REACTIONS (2)
  - BLADDER CANCER [None]
  - ADRENAL NEOPLASM [None]
